FAERS Safety Report 20697453 (Version 1)
Quarter: 2022Q2

REPORT INFORMATION
  Report Type: Report from Study
  Country: US (occurrence: US)
  Receive Date: 20220411
  Receipt Date: 20220411
  Transmission Date: 20220721
  Serious: Yes (Hospitalization, Other)
  Sender: FDA-Public Use
  Company Number: US-DUCHESNAY-2022US000035

PATIENT
  Age: 48 Year
  Sex: Female

DRUGS (1)
  1. OSPEMIFENE [Suspect]
     Active Substance: OSPEMIFENE
     Indication: Vulvovaginal dryness
     Dosage: 60 MILLIGRAM, QD
     Route: 048
     Dates: start: 20220214, end: 20220318

REACTIONS (3)
  - Hemiparesis [Not Recovered/Not Resolved]
  - Cerebrovascular accident [Not Recovered/Not Resolved]
  - Pain in extremity [Recovered/Resolved]

NARRATIVE: CASE EVENT DATE: 20220228
